FAERS Safety Report 5898921-6 (Version None)
Quarter: 2008Q3

REPORT INFORMATION
  Report Type: 
  Country: None (occurrence: None)
  Receive Date: 20080925
  Receipt Date: 20080916
  Transmission Date: 20090109
  Serious: Yes (Death)
  Sender: FDA-Public Use
  Company Number: JP-SANOFI-SYNTHELABO-A01200809582

PATIENT
  Age: 62 Year
  Sex: Male

DRUGS (7)
  1. DECADRON [Concomitant]
     Dosage: 8 MG
     Route: 041
     Dates: start: 20071221, end: 20080618
  2. SEROTONE [Concomitant]
     Dosage: 2 MG
     Route: 041
     Dates: start: 20071221, end: 20080618
  3. FLUOROURACIL [Suspect]
     Dosage: 560 MG
     Route: 040
     Dates: start: 20080618, end: 20080618
  4. FLUOROURACIL [Suspect]
     Dosage: 3360 MG
     Route: 041
     Dates: start: 20080618, end: 20080620
  5. AVASTIN [Suspect]
     Dosage: 250 MG
     Route: 041
     Dates: start: 20080618, end: 20080618
  6. ELPLAT [Suspect]
     Dosage: 119 MG
     Route: 041
     Dates: start: 20080618, end: 20080618
  7. LEUCOVORIN CALCIUM [Suspect]
     Dosage: 280 MG
     Route: 041
     Dates: start: 20080618, end: 20080618

REACTIONS (1)
  - SMALL INTESTINAL PERFORATION [None]
